FAERS Safety Report 9955868 (Version 1)
Quarter: 2014Q1

REPORT INFORMATION
  Report Type: Report from Study
  Country: US (occurrence: US)
  Receive Date: 20140304
  Receipt Date: 20140304
  Transmission Date: 20141002
  Serious: No
  Sender: FDA-Public Use
  Company Number: US-ABBVIE-13P-163-1084253-00

PATIENT
  Age: 50 Year
  Sex: Female
  Weight: 81.27 kg

DRUGS (7)
  1. HUMIRA [Suspect]
     Indication: PSORIATIC ARTHROPATHY
     Dates: start: 201110, end: 20130410
  2. HUMIRA [Suspect]
     Dates: start: 20130410, end: 20130424
  3. MELOXICAM [Concomitant]
     Indication: PSORIATIC ARTHROPATHY
     Dates: start: 20130402
  4. ZYRTEC [Concomitant]
     Indication: HYPERSENSITIVITY
  5. VENTOLIN [Concomitant]
     Indication: ASTHMA
  6. CLOBETASOL [Concomitant]
     Indication: PSORIASIS
  7. ENBREL [Concomitant]
     Indication: PSORIATIC ARTHROPATHY
     Dates: start: 20130430

REACTIONS (7)
  - Device failure [Not Recovered/Not Resolved]
  - Oral pain [Not Recovered/Not Resolved]
  - Tooth infection [Not Recovered/Not Resolved]
  - Abscess oral [Recovered/Resolved]
  - Device failure [Not Recovered/Not Resolved]
  - Drug ineffective [Not Recovered/Not Resolved]
  - Psoriatic arthropathy [Not Recovered/Not Resolved]
